FAERS Safety Report 12501011 (Version 5)
Quarter: 2018Q1

REPORT INFORMATION
  Report Type: Report from Study
  Country: US (occurrence: US)
  Receive Date: 20160627
  Receipt Date: 20180119
  Transmission Date: 20180508
  Serious: Yes (Hospitalization, Other)
  Sender: FDA-Public Use
  Company Number: US-SA-2016SA116058

PATIENT
  Age: 48 Year
  Sex: Male

DRUGS (1)
  1. LEMTRADA [Suspect]
     Active Substance: ALEMTUZUMAB
     Indication: MULTIPLE SCLEROSIS
     Route: 041
     Dates: start: 20160613, end: 20160615

REACTIONS (18)
  - Oesophageal disorder [Not Recovered/Not Resolved]
  - Urethral discharge [Recovered/Resolved]
  - Feeding disorder [Not Recovered/Not Resolved]
  - Asthenia [Not Recovered/Not Resolved]
  - Asthenia [Not Recovered/Not Resolved]
  - Pain [Not Recovered/Not Resolved]
  - Urinary incontinence [Not Recovered/Not Resolved]
  - Urinary tract infection bacterial [Not Recovered/Not Resolved]
  - Cough [Not Recovered/Not Resolved]
  - Device occlusion [Recovered/Resolved]
  - Immunodeficiency [Not Recovered/Not Resolved]
  - Decreased activity [Not Recovered/Not Resolved]
  - Chills [Not Recovered/Not Resolved]
  - Proteinuria [Not Recovered/Not Resolved]
  - Dehydration [Unknown]
  - White blood cell count abnormal [Unknown]
  - Bladder pain [Not Recovered/Not Resolved]
  - Nausea [Not Recovered/Not Resolved]

NARRATIVE: CASE EVENT DATE: 2016
